FAERS Safety Report 10215419 (Version 1)
Quarter: 2014Q2

REPORT INFORMATION
  Report Type: Spontaneous
  Country: DE (occurrence: DE)
  Receive Date: 20140604
  Receipt Date: 20140604
  Transmission Date: 20141212
  Serious: Yes (Other)
  Sender: FDA-Public Use
  Company Number: GXKR2014DE002104

PATIENT
  Sex: Male

DRUGS (2)
  1. FENTANYL [Suspect]
     Indication: NECK PAIN
     Route: 062
  2. CLARITHROMYCIN [Interacting]
     Indication: HELICOBACTER INFECTION
     Route: 048

REACTIONS (3)
  - Loss of consciousness [Recovered/Resolved]
  - Respiratory depression [Unknown]
  - Drug interaction [Unknown]
